FAERS Safety Report 13756796 (Version 3)
Quarter: 2017Q3

REPORT INFORMATION
  Report Type: Report from Study
  Country: None (occurrence: GB)
  Receive Date: 20170714
  Receipt Date: 20170821
  Transmission Date: 20171127
  Serious: Yes (Hospitalization)
  Sender: FDA-Public Use
  Company Number: GB-ABBVIE-17P-167-2036369-00

PATIENT
  Age: 71 Year
  Sex: Female

DRUGS (1)
  1. DUODOPA [Suspect]
     Active Substance: CARBIDOPA\LEVODOPA
     Indication: PARKINSON^S DISEASE
     Dosage: 1 100 ML CASSETTE
     Route: 050

REACTIONS (6)
  - Fall [Unknown]
  - Device alarm issue [Unknown]
  - Product storage error [Unknown]
  - Drug administration error [Unknown]
  - Lower limb fracture [Unknown]
  - Incorrect dose administered [Unknown]

NARRATIVE: CASE EVENT DATE: 201707
